FAERS Safety Report 8319046-6 (Version None)
Quarter: 2012Q2

REPORT INFORMATION
  Report Type: 
  Country: None (occurrence: None)
  Receive Date: 20120427
  Receipt Date: 20120420
  Transmission Date: 20120825
  Serious: Yes (Hospitalization)
  Sender: FDA-Public Use
  Company Number: US-ACTELION-A-NJ2012-64632

PATIENT

DRUGS (4)
  1. ASPIRIN [Concomitant]
  2. SILDENAFIL [Concomitant]
  3. OXYGEN [Concomitant]
  4. VENTAVIS [Suspect]
     Indication: PULMONARY ARTERIAL HYPERTENSION
     Dosage: UNK
     Route: 055
     Dates: start: 20110831

REACTIONS (1)
  - CARBON MONOXIDE POISONING [None]
